FAERS Safety Report 9007396 (Version 3)
Quarter: 2014Q1

REPORT INFORMATION
  Report Type: Spontaneous
  Country: US (occurrence: US)
  Receive Date: 20130110
  Receipt Date: 20140217
  Transmission Date: 20141002
  Serious: Yes (Hospitalization, Other)
  Sender: FDA-Public Use
  Company Number: US-009507513-1301USA002948

PATIENT
  Sex: Female
  Weight: 61.23 kg

DRUGS (4)
  1. FOSAMAX [Suspect]
     Indication: OSTEOPOROSIS
     Dosage: 10 MG, QD
     Route: 048
     Dates: start: 1995, end: 200110
  2. FOSAMAX [Suspect]
     Dosage: 70 MG, QW
     Route: 048
     Dates: start: 200110, end: 2011
  3. CALCIUM CARBONATE [Concomitant]
     Indication: OSTEOPOROSIS
  4. VITAMIN D (UNSPECIFIED) [Concomitant]
     Indication: OSTEOPOROSIS

REACTIONS (32)
  - Femoral neck fracture [Unknown]
  - Internal fixation of fracture [Unknown]
  - Hip arthroplasty [Unknown]
  - Fracture nonunion [Unknown]
  - Humerus fracture [Unknown]
  - Medical device pain [Unknown]
  - Medical device removal [Unknown]
  - Cholecystectomy [Unknown]
  - Abscess jaw [Recovering/Resolving]
  - Osteonecrosis [Unknown]
  - Jaw fracture [Unknown]
  - Wrist fracture [Unknown]
  - Impaired healing [Unknown]
  - Rheumatoid arthritis [Unknown]
  - Pain [Unknown]
  - Synovitis [Unknown]
  - Asthma [Unknown]
  - Gonorrhoea [Unknown]
  - Osteopenia [Unknown]
  - International normalised ratio increased [Recovered/Resolved]
  - Vitamin K deficiency [Unknown]
  - Osteoarthritis [Unknown]
  - Abscess jaw [Unknown]
  - Dental caries [Unknown]
  - Cardiac murmur [Unknown]
  - Intervertebral disc space narrowing [Unknown]
  - Pulmonary oedema [Recovering/Resolving]
  - Atelectasis [Recovering/Resolving]
  - Lung disorder [Recovering/Resolving]
  - Sinus disorder [Unknown]
  - Neck pain [Unknown]
  - Back pain [Unknown]
